FAERS Safety Report 11927194 (Version 2)
Quarter: 2016Q1

REPORT INFORMATION
  Report Type: Spontaneous
  Country: US (occurrence: US)
  Receive Date: 20160119
  Receipt Date: 20160304
  Transmission Date: 20160526
  Serious: No
  Sender: FDA-Public Use
  Company Number: US-009507513-1601USA002983

PATIENT
  Age: 21 Year
  Sex: Female
  Weight: 86.62 kg

DRUGS (1)
  1. NEXPLANON [Suspect]
     Active Substance: ETONOGESTREL
     Indication: CONTRACEPTION
     Dosage: 68 MG, EVERY 3 YEARS
     Route: 058
     Dates: start: 20151228, end: 20151228

REACTIONS (3)
  - No adverse event [Unknown]
  - Product quality issue [Unknown]
  - Device difficult to use [Recovered/Resolved]

NARRATIVE: CASE EVENT DATE: 20151228
